FAERS Safety Report 15388108 (Version 1)
Quarter: 2018Q3

REPORT INFORMATION
  Report Type: Spontaneous
  Country: US (occurrence: US)
  Receive Date: 20180915
  Receipt Date: 20180915
  Transmission Date: 20181010
  Serious: No
  Sender: FDA-Public Use
  Company Number: US-009507513-1809USA004002

PATIENT
  Sex: Female

DRUGS (1)
  1. NEXPLANON [Suspect]
     Active Substance: ETONOGESTREL
     Dosage: 1 DF (1 ROD), UNK
     Route: 067

REACTIONS (2)
  - Nasopharyngitis [Not Recovered/Not Resolved]
  - Incorrect route of drug administration [Unknown]
